FAERS Safety Report 13849175 (Version 1)
Quarter: 2017Q3

REPORT INFORMATION
  Report Type: Other
  Country: DE (occurrence: DE)
  Receive Date: 20170809
  Receipt Date: 20170809
  Transmission Date: 20171127
  Serious: No
  Sender: FDA-Public Use
  Company Number: DE-LUPIN PHARMACEUTICALS INC.-2017-01811

PATIENT

DRUGS (3)
  1. FRISIUM [Concomitant]
     Active Substance: CLOBAZAM
     Indication: EPILEPSY
     Dosage: 5 MG, QD
     Route: 048
     Dates: start: 201408
  2. LEVETIRACETAM. [Suspect]
     Active Substance: LEVETIRACETAM
     Indication: EPILEPSY
     Dosage: 250 MG - 0 - 500 MG
     Route: 048
     Dates: start: 201702
  3. OSPOLOT [Concomitant]
     Active Substance: SULTHIAME
     Indication: EPILEPSY
     Dosage: 50 MG, BID
     Route: 048
     Dates: start: 201208

REACTIONS (1)
  - Conduct disorder [Not Recovered/Not Resolved]

NARRATIVE: CASE EVENT DATE: 20170201
